FAERS Safety Report 5905803-X (Version None)
Quarter: 2008Q4

REPORT INFORMATION
  Report Type: 
  Country: None (occurrence: None)
  Receive Date: 20081002
  Receipt Date: 20080923
  Transmission Date: 20090506
  Serious: Yes (Hospitalization)
  Sender: FDA-Public Use
  Company Number: B0530112A

PATIENT
  Age: 43 Year
  Sex: Female
  Weight: 65 kg

DRUGS (5)
  1. WELLBUTRIN [Suspect]
     Indication: DEPRESSION
     Dosage: 150MG PER DAY
     Route: 065
     Dates: start: 20080603
  2. CLORAZEPATE DIPOTASSIUM [Concomitant]
     Dosage: 1TAB PER DAY
  3. TRAZOLAN [Concomitant]
     Indication: SLEEP DISORDER
     Route: 048
     Dates: start: 20070101
  4. TRANXENE [Concomitant]
     Indication: INSOMNIA
     Route: 048
     Dates: start: 20070101
  5. HALOPERIDOL [Concomitant]
     Indication: SLEEP DISORDER
     Route: 048
     Dates: start: 20060101

REACTIONS (1)
  - HYPERVENTILATION [None]
